FAERS Safety Report 19203634 (Version 1)
Quarter: 2021Q2

REPORT INFORMATION
  Report Type: Spontaneous
  Country: US (occurrence: US)
  Receive Date: 20210503
  Receipt Date: 20210503
  Transmission Date: 20210717
  Serious: No
  Sender: FDA-Public Use
  Company Number: US-SA-2021SA137709

PATIENT

DRUGS (2)
  1. NA [Concomitant]
     Active Substance: SODIUM
  2. LEMTRADA [Suspect]
     Active Substance: ALEMTUZUMAB
     Dosage: UNK

REACTIONS (2)
  - Thyroid disorder [Unknown]
  - Platelet disorder [Unknown]
